FAERS Safety Report 9350400 (Version 1)
Quarter: 2013Q2

REPORT INFORMATION
  Report Type: Spontaneous
  Country: MX (occurrence: MX)
  Receive Date: 20130617
  Receipt Date: 20130617
  Transmission Date: 20140414
  Serious: Yes (Other)
  Sender: FDA-Public Use
  Company Number: MX-ELI_LILLY_AND_COMPANY-MX201306002011

PATIENT
  Age: 20 Year
  Sex: Female

DRUGS (1)
  1. CYMBALTA [Suspect]
     Indication: FIBROMYALGIA
     Dosage: 30 MG, UNKNOWN
     Route: 065

REACTIONS (3)
  - VIIth nerve paralysis [Unknown]
  - Nausea [Unknown]
  - Vomiting [Unknown]
